FAERS Safety Report 21194491 (Version 1)
Quarter: 2022Q3

REPORT INFORMATION
  Report Type: Report from Study
  Country: US (occurrence: US)
  Receive Date: 20220810
  Receipt Date: 20220810
  Transmission Date: 20221027
  Serious: Yes (Death, Life-Threatening, Hospitalization, Disabling)
  Sender: FDA-Public Use
  Company Number: US-JNJFOC-20191115308

PATIENT
  Age: 77 Year
  Sex: Male
  Weight: 79.4 kg

DRUGS (14)
  1. CILTACABTAGENE AUTOLEUCEL [Suspect]
     Active Substance: CILTACABTAGENE AUTOLEUCEL
     Indication: Plasma cell myeloma refractory
     Dosage: 48.2 10^6 CAR-POSITIVE VIABLE T CELLS, (PRESCRIBED DOSE 0.75 X10^6 CAR POSITIVE VIABLE T-CELLS, APHE
     Route: 042
     Dates: start: 20191105
  2. VENETOCLAX [Concomitant]
     Active Substance: VENETOCLAX
     Indication: Plasma cell myeloma refractory
     Route: 048
     Dates: start: 20191007, end: 20191015
  3. DEXAMETHASONE [Concomitant]
     Active Substance: DEXAMETHASONE
     Indication: Plasma cell myeloma refractory
     Dates: start: 20191007, end: 20191015
  4. TAMSULOSIN [Concomitant]
     Active Substance: TAMSULOSIN
     Indication: Benign prostatic hyperplasia
     Dates: start: 2013
  5. VESICARE [Concomitant]
     Active Substance: SOLIFENACIN SUCCINATE
     Indication: Benign prostatic hyperplasia
     Route: 048
     Dates: start: 20150817
  6. OMEPRAZOLE [Concomitant]
     Active Substance: OMEPRAZOLE
     Indication: Prophylaxis
     Route: 048
     Dates: start: 20170830
  7. INSULIN GLARGINE [Concomitant]
     Active Substance: INSULIN GLARGINE
     Indication: Diabetes mellitus
     Dosage: 20-40 UNITS
     Route: 058
     Dates: start: 2008
  8. HYDROMORPHONE [Concomitant]
     Active Substance: HYDROMORPHONE
     Indication: Bone pain
     Route: 048
     Dates: start: 20190916
  9. CEFDINIR [Concomitant]
     Active Substance: CEFDINIR
     Route: 048
     Dates: start: 20150815
  10. ACYCLOVIR                          /00587301/ [Concomitant]
     Indication: Prophylaxis
     Route: 048
     Dates: start: 20150817
  11. ACYCLOVIR                          /00587301/ [Concomitant]
     Dates: start: 20191101
  12. ZOMETA [Concomitant]
     Active Substance: ZOLEDRONIC ACID
     Indication: Bone pain
  13. TYLENOL WITH CODEINE [Concomitant]
     Active Substance: ACETAMINOPHEN\CODEINE PHOSPHATE
     Indication: Bone pain
     Dosage: 1-2 TABS AS NECESSARY
     Route: 048
     Dates: start: 20150416
  14. ACETAMINOPHEN [Concomitant]
     Active Substance: ACETAMINOPHEN
     Indication: Bone pain
     Dates: start: 20191101

REACTIONS (6)
  - Sepsis [Fatal]
  - Immune effector cell-associated neurotoxicity syndrome [Recovered/Resolved]
  - Cytokine release syndrome [Recovered/Resolved]
  - Hypoxia [Unknown]
  - Supraventricular tachycardia [Unknown]
  - Mental status changes [Not Recovered/Not Resolved]

NARRATIVE: CASE EVENT DATE: 20191106
